FAERS Safety Report 6034774-3 (Version None)
Quarter: 2009Q1

REPORT INFORMATION
  Report Type: 
  Country: None (occurrence: None)
  Receive Date: 20090112
  Receipt Date: 20090105
  Transmission Date: 20090719
  Serious: Yes (Other)
  Sender: FDA-Public Use
  Company Number: US-ELI_LILLY_AND_COMPANY-US200901000405

PATIENT
  Sex: Female

DRUGS (7)
  1. FORTEO [Suspect]
     Indication: OSTEOPOROSIS
     Dosage: 20 UG, DAILY (1/D)
  2. FORTEO [Suspect]
     Dates: start: 20080101
  3. SECTRAL [Concomitant]
     Dosage: UNK, 2/D
  4. DIOVAN [Concomitant]
     Dosage: UNK, DAILY (1/D)
  5. FOSAMAX [Concomitant]
     Dosage: UNK, WEEKLY (1/W)
     Dates: end: 20080101
  6. SYNTHROID [Concomitant]
     Dosage: UNK, DAILY (1/D)
  7. NEXIUM [Concomitant]

REACTIONS (4)
  - FEELING ABNORMAL [None]
  - LARGE INTESTINE PERFORATION [None]
  - PAIN [None]
  - RESORPTION BONE INCREASED [None]
